FAERS Safety Report 11326234 (Version 2)
Quarter: 2015Q3

REPORT INFORMATION
  Report Type: Spontaneous
  Country: FR (occurrence: FR)
  Receive Date: 20150731
  Receipt Date: 20150806
  Transmission Date: 20151125
  Serious: Yes (Other)
  Sender: FDA-Public Use
  Company Number: FR-009507513-1507FRA011664

PATIENT
  Age: 9 Year
  Sex: Female
  Weight: 28.5 kg

DRUGS (2)
  1. IMIPENEM AND CILASTATIN [Suspect]
     Active Substance: CILASTATIN SODIUM\IMIPENEM
     Dosage: 350 MG, 3 X DAY
     Route: 042
     Dates: start: 201502, end: 20150609
  2. CIFLOX (CIPROFLOXACIN HYDROCHLORIDE) [Suspect]
     Active Substance: CIPROFLOXACIN HYDROCHLORIDE
     Dosage: UNK, FREQUENCY 2 X DAY
     Route: 048
     Dates: start: 20150324, end: 20150609

REACTIONS (1)
  - Erythema nodosum [Recovered/Resolved]

NARRATIVE: CASE EVENT DATE: 201505
